FAERS Safety Report 10399916 (Version 2)
Quarter: 2015Q1

REPORT INFORMATION
  Report Type: Spontaneous
  Country: FR (occurrence: FR)
  Receive Date: 20140821
  Receipt Date: 20150318
  Transmission Date: 20150720
  Serious: Yes (Hospitalization, Other)
  Sender: FDA-Public Use
  Company Number: FR-GLAXOSMITHKLINE-B1022977A

PATIENT
  Age: 37 Year
  Sex: Female

DRUGS (5)
  1. DEPAKINE [Concomitant]
     Active Substance: VALPROATE SODIUM
     Route: 065
  2. DIANE [Concomitant]
     Active Substance: CYPROTERONE ACETATE\ETHINYL ESTRADIOL
     Indication: CONTRACEPTION
     Route: 065
     Dates: end: 2013
  3. LAMICTAL [Suspect]
     Active Substance: LAMOTRIGINE
     Indication: EPILEPSY
     Route: 048
  4. DEROXAT [Concomitant]
     Active Substance: PAROXETINE HYDROCHLORIDE
     Route: 065
  5. ADEPAL [Interacting]
     Active Substance: ETHINYL ESTRADIOL\LEVONORGESTREL
     Indication: CONTRACEPTION
     Route: 048
     Dates: start: 2013, end: 2013

REACTIONS (4)
  - Drug interaction [Unknown]
  - Pregnancy on oral contraceptive [Recovered/Resolved with Sequelae]
  - Exposure during pregnancy [Unknown]
  - Unintended pregnancy [Recovered/Resolved with Sequelae]

NARRATIVE: CASE EVENT DATE: 2013
